FAERS Safety Report 5142995-7 (Version None)
Quarter: 2006Q4

REPORT INFORMATION
  Report Type: 
  Country: None (occurrence: None)
  Receive Date: 20061103
  Receipt Date: 20061030
  Transmission Date: 20070319
  Serious: Yes (Death)
  Sender: FDA-Public Use
  Company Number: 2006AC01982

PATIENT
  Age: 24 Year
  Sex: Male

DRUGS (3)
  1. PROPOFOL [Suspect]
     Indication: SEDATION
     Route: 042
  2. METHYLPREDNISOLONE 4MG TAB [Concomitant]
  3. METHYLPREDNISOLONE 4MG TAB [Concomitant]

REACTIONS (6)
  - BRADYCARDIA [None]
  - BRAIN OEDEMA [None]
  - HYPERKALAEMIA [None]
  - PROPOFOL INFUSION SYNDROME [None]
  - RENAL FAILURE ACUTE [None]
  - RHABDOMYOLYSIS [None]
